FAERS Safety Report 5337158-6 (Version None)
Quarter: 2007Q2

REPORT INFORMATION
  Report Type: 
  Country: None (occurrence: None)
  Receive Date: 20070315
  Receipt Date: 20060731
  Transmission Date: 20071010
  Serious: Yes (Other)
  Sender: FDA-Public Use
  Company Number: PHEH2006US09827

PATIENT
  Sex: Female

DRUGS (2)
  1. TRILEPTAL [Suspect]
     Indication: TRIGEMINAL NEURALGIA
     Dates: start: 20060501
  2. ANTIHYPERTENSIVE DRUG (NO INGREGIENTS/SUBSTANCES) [Suspect]

REACTIONS (5)
  - CONFUSIONAL STATE [None]
  - EXPRESSIVE LANGUAGE DISORDER [None]
  - FATIGUE [None]
  - ORAL SOFT TISSUE DISORDER [None]
  - THERAPEUTIC RESPONSE UNEXPECTED [None]
